FAERS Safety Report 9109095 (Version 3)
Quarter: 2013Q2

REPORT INFORMATION
  Report Type: Spontaneous
  Country: FI (occurrence: FI)
  Receive Date: 20130222
  Receipt Date: 20130423
  Transmission Date: 20140414
  Serious: Yes (Hospitalization)
  Sender: FDA-Public Use
  Company Number: FI-ELI_LILLY_AND_COMPANY-FI201302004873

PATIENT
  Sex: Male

DRUGS (9)
  1. FORSTEO [Suspect]
     Indication: OSTEOPOROSIS
     Dosage: 20 UG, QD
     Route: 058
     Dates: start: 20120103
  2. SERETIDE [Concomitant]
     Indication: ASTHMA
     Dosage: 2 DF, BID
     Route: 065
  3. OXYCONTIN [Concomitant]
     Indication: PAIN
     Dosage: 2 DF, BID
     Route: 065
  4. OXYCONTIN [Concomitant]
     Dosage: 1 DF, QD
     Route: 065
  5. BISOPROLOL [Concomitant]
     Dosage: 12.5 MG, BID
     Route: 065
  6. MAREVAN [Concomitant]
     Dosage: 5 MG, UNKNOWN
     Route: 065
  7. OMEPRAZOLE [Concomitant]
     Dosage: 1 DF, BID
     Route: 065
  8. KALEORID [Concomitant]
     Dosage: 1 G, UNKNOWN
     Route: 065
  9. PARATABS [Concomitant]
     Indication: PAIN
     Dosage: UNK, UNKNOWN
     Route: 065

REACTIONS (2)
  - Erysipelas [Recovered/Resolved]
  - Staphylococcal skin infection [Unknown]
